FAERS Safety Report 10074320 (Version 1)
Quarter: 2014Q2

REPORT INFORMATION
  Report Type: Spontaneous
  Country: JP (occurrence: JP)
  Receive Date: 20140413
  Receipt Date: 20140413
  Transmission Date: 20141212
  Serious: Yes (Life-Threatening, Hospitalization)
  Sender: FDA-Public Use
  Company Number: JP-AMGEN-JPNSP2014025011

PATIENT
  Age: 64 Year
  Sex: Female
  Weight: 54 kg

DRUGS (16)
  1. ENBREL [Suspect]
     Indication: RHEUMATOID ARTHRITIS
     Dosage: 25 MG, UNKNOWN FREQUENCY 9 TIMES ADMINISTRATION IN TOTAL
     Route: 058
     Dates: start: 20060331, end: 20060427
  2. METHOTREXATE SODIUM [Suspect]
     Indication: RHEUMATOID ARTHRITIS
     Dosage: 6 MG, WEEKLY
     Route: 048
     Dates: start: 20060329, end: 20070128
  3. METHOTREXATE SODIUM [Suspect]
     Dosage: 10 MG, WEEKLY
     Route: 048
     Dates: start: 20070129
  4. METHOTREXATE SODIUM [Suspect]
     Dosage: 12.5 MG, WEEKLY
     Route: 048
     Dates: start: 20070312
  5. METHOTREXATE SODIUM [Suspect]
     Dosage: 15 MG, WEEKLY
     Route: 048
     Dates: start: 20080331, end: 20130423
  6. REMICADE [Suspect]
     Indication: RHEUMATOID ARTHRITIS
     Dosage: 200 MG, UNK
     Route: 041
     Dates: start: 20070615, end: 20090611
  7. REMICADE [Suspect]
     Dosage: 6 MG/KG, UNK
     Route: 041
     Dates: start: 20090728, end: 20120131
  8. REMICADE [Suspect]
     Dosage: 400 MG, UNK
     Route: 041
     Dates: start: 20120313
  9. MEDROL                             /00049601/ [Concomitant]
     Indication: RHEUMATOID ARTHRITIS
     Dosage: 2 MG, 1X/DAY
     Route: 048
     Dates: start: 20110322
  10. TAKEPRON [Concomitant]
     Indication: GASTRITIS
     Dosage: 30 MG, 1X/DAY
     Route: 048
     Dates: start: 20120821
  11. FOSAMAC [Concomitant]
     Indication: OSTEOPOROSIS
     Dosage: 35 MG, WEEKLY
     Route: 048
     Dates: start: 20071119, end: 201303
  12. FOLIAMIN [Concomitant]
     Indication: PROPHYLAXIS
     Dosage: 1 DF, WEEKLY
     Route: 048
     Dates: start: 20061218, end: 20130423
  13. GASCON [Concomitant]
     Indication: GASTRITIS
     Dosage: 40 MG, 2X/DAY
     Route: 048
     Dates: start: 20060221, end: 201303
  14. GASMOTIN [Concomitant]
     Indication: GASTRITIS
     Dosage: 5 MG, 2X/DAY
     Route: 048
     Dates: start: 20060221, end: 201303
  15. DEPAS [Concomitant]
     Indication: INSOMNIA
     Dosage: 1 MG, 1X/DAY
     Route: 048
     Dates: start: 20061218, end: 20131107
  16. CELECOX [Concomitant]
     Indication: PAIN
     Dosage: 200 MG, 2X/DAY
     Route: 048
     Dates: start: 20120502

REACTIONS (1)
  - Diffuse large B-cell lymphoma [Recovered/Resolved]
